FAERS Safety Report 8281973-6 (Version None)
Quarter: 2012Q2

REPORT INFORMATION
  Report Type: 
  Country: None (occurrence: None)
  Receive Date: 20120413
  Receipt Date: 20120411
  Transmission Date: 20120825
  Serious: Yes (Other)
  Sender: FDA-Public Use
  Company Number: GB-JNJFOC-20120405536

PATIENT
  Sex: Male

DRUGS (8)
  1. NICOTINE [Suspect]
     Indication: SMOKING CESSATION THERAPY
     Route: 062
  2. NICOTINE [Suspect]
     Indication: SMOKING CESSATION THERAPY
     Route: 062
  3. NICORETTE [Suspect]
     Indication: SMOKING CESSATION THERAPY
     Dosage: 10 TO 15 PIECES PER DAY
     Route: 048
  4. NICOTINE [Suspect]
     Route: 062
  5. AMISULPRIDE [Concomitant]
     Indication: PRODUCT USED FOR UNKNOWN INDICATION
     Route: 065
  6. NICOTINE [Suspect]
     Route: 062
  7. LORAZEPAM [Concomitant]
     Indication: PRODUCT USED FOR UNKNOWN INDICATION
     Route: 065
  8. TEMAZEPAM [Concomitant]
     Indication: PRODUCT USED FOR UNKNOWN INDICATION
     Route: 065

REACTIONS (4)
  - NICOTINE DEPENDENCE [None]
  - DRUG INEFFECTIVE [None]
  - FEELING JITTERY [None]
  - BIPOLAR DISORDER [None]
